FAERS Safety Report 10178696 (Version 2)
Quarter: 2014Q2

REPORT INFORMATION
  Report Type: Spontaneous
  Country: DE (occurrence: DE)
  Receive Date: 20140519
  Receipt Date: 20140519
  Transmission Date: 20141212
  Serious: Yes (Other)
  Sender: FDA-Public Use
  Company Number: DE-UCBSA-117404

PATIENT
  Age: 69 Year
  Sex: Female

DRUGS (1)
  1. NEUPRO [Suspect]
     Indication: RESTLESS LEGS SYNDROME
     Dates: end: 20140327

REACTIONS (8)
  - Blood pressure increased [Unknown]
  - Cardiac disorder [Unknown]
  - Application site erythema [Unknown]
  - Application site pruritus [Unknown]
  - Application site vesicles [Unknown]
  - Eye pain [Unknown]
  - Photopsia [Unknown]
  - Pain [Unknown]
